FAERS Safety Report 7620810-7 (Version None)
Quarter: 2011Q3

REPORT INFORMATION
  Report Type: 
  Country: None (occurrence: None)
  Receive Date: 20110719
  Receipt Date: 20110708
  Transmission Date: 20111222
  Serious: Yes (Other)
  Sender: FDA-Public Use
  Company Number: PHHY2011GB60947

PATIENT
  Age: 84 Year
  Sex: Female

DRUGS (8)
  1. DONEPEZIL HCL [Suspect]
  2. LISINOPRIL [Concomitant]
  3. SALMETEROL [Concomitant]
  4. FLUTICASONE PROPIONATE [Concomitant]
  5. ALBUTEROL [Concomitant]
  6. ASPIRIN [Concomitant]
  7. LANSOPRAZOLE [Concomitant]
  8. AMLODIPINE [Concomitant]

REACTIONS (1)
  - LINEAR IGA DISEASE [None]
